FAERS Safety Report 6449890-1 (Version None)
Quarter: 2009Q4

REPORT INFORMATION
  Report Type: 
  Country: None (occurrence: None)
  Receive Date: 20091123
  Receipt Date: 20091112
  Transmission Date: 20100525
  Serious: Yes (Other)
  Sender: FDA-Public Use
  Company Number: US-BIOGENIDEC-2009BI037278

PATIENT
  Age: 32 Year
  Sex: Female

DRUGS (2)
  1. AVONEX [Suspect]
     Indication: MULTIPLE SCLEROSIS
     Route: 030
     Dates: start: 20040601, end: 20060501
  2. AVONEX [Suspect]
     Route: 030
     Dates: start: 20070401, end: 20071001

REACTIONS (1)
  - ABNORMAL PRODUCT OF CONCEPTION [None]
